FAERS Safety Report 11753678 (Version 3)
Quarter: 2016Q1

REPORT INFORMATION
  Report Type: Spontaneous
  Country: US (occurrence: US)
  Receive Date: 20151119
  Receipt Date: 20160104
  Transmission Date: 20160525
  Serious: Yes (Other)
  Sender: FDA-Public Use
  Company Number: US-PFIZER INC-2015380406

PATIENT
  Age: 31 Year
  Sex: Female

DRUGS (2)
  1. IBRANCE [Suspect]
     Active Substance: PALBOCICLIB
     Indication: BREAST CANCER STAGE IV
     Dosage: 125 MG, DAILY
     Route: 048
     Dates: start: 20151009, end: 20151022
  2. IBRANCE [Suspect]
     Active Substance: PALBOCICLIB
     Dosage: 100 MG DAILY DAYS 1-21 Q 28 DAYS
     Route: 048
     Dates: start: 20151105, end: 20151123

REACTIONS (4)
  - Disease progression [Unknown]
  - White blood cell count decreased [Recovered/Resolved]
  - Breast cancer stage IV [Unknown]
  - Neutropenia [Recovered/Resolved]

NARRATIVE: CASE EVENT DATE: 2015
